FAERS Safety Report 15771433 (Version 2)
Quarter: 2019Q1

REPORT INFORMATION
  Report Type: Spontaneous
  Country: VN (occurrence: VN)
  Receive Date: 20181228
  Receipt Date: 20190313
  Transmission Date: 20190417
  Serious: Yes (Other)
  Sender: FDA-Public Use
  Company Number: VN-JNJFOC-20181231934

PATIENT

DRUGS (1)
  1. FUGACAR [Suspect]
     Active Substance: MEBENDAZOLE
     Indication: TOXOCARIASIS
     Route: 064
     Dates: start: 20181113, end: 20181124

REACTIONS (3)
  - Foetal exposure during pregnancy [Recovered/Resolved]
  - Foetal growth restriction [Unknown]
  - Foetal heart rate abnormal [Unknown]
